FAERS Safety Report 17963710 (Version 1)
Quarter: 2020Q2

REPORT INFORMATION
  Report Type: Report from Study
  Country: None (occurrence: US)
  Receive Date: 20200630
  Receipt Date: 20200630
  Transmission Date: 20200714
  Serious: No
  Sender: FDA-Public Use
  Company Number: US-BIOVITRUM-2019US0156

PATIENT
  Sex: Female

DRUGS (3)
  1. MUSCLE RELAXANT [Concomitant]
     Active Substance: UNSPECIFIED INGREDIENT
  2. TRAMADOL. [Concomitant]
     Active Substance: TRAMADOL
  3. KINERET [Suspect]
     Active Substance: ANAKINRA
     Indication: PRODUCT USED FOR UNKNOWN INDICATION
     Route: 058
     Dates: start: 201811

REACTIONS (4)
  - Diarrhoea [Unknown]
  - Injection site pain [Unknown]
  - Product dose omission [Unknown]
  - Pruritus [Unknown]
